FAERS Safety Report 5106019-X (Version None)
Quarter: 2006Q3

REPORT INFORMATION
  Report Type: 
  Country: None (occurrence: None)
  Receive Date: 20060915
  Receipt Date: 20060907
  Transmission Date: 20061208
  Serious: Yes (Other)
  Sender: FDA-Public Use
  Company Number: IE-ABBOTT-06P-229-0343551-00

PATIENT
  Age: 37 Year
  Sex: Female

DRUGS (4)
  1. KLACID [Suspect]
     Indication: OBLITERATIVE BRONCHIOLITIS
     Dosage: 250/ 04 WEEKS
  2. SINGULAIR [Suspect]
     Indication: OBLITERATIVE BRONCHIOLITIS
  3. ZITHROMAX [Suspect]
     Indication: OBLITERATIVE BRONCHIOLITIS
     Dosage: 250 MG/ 8 WEEKS
  4. DEXAMETHASONE TAB [Concomitant]
     Indication: DRUG USE FOR UNKNOWN INDICATION

REACTIONS (3)
  - HYPOCALCAEMIA [None]
  - MYALGIA [None]
  - PARAESTHESIA [None]
